FAERS Safety Report 15398526 (Version 2)
Quarter: 2018Q4

REPORT INFORMATION
  Report Type: Spontaneous
  Country: JP (occurrence: JP)
  Receive Date: 20180918
  Receipt Date: 20181130
  Transmission Date: 20190204
  Serious: Yes (Hospitalization)
  Sender: FDA-Public Use
  Company Number: GXJP2018JP001446

PATIENT
  Sex: Male

DRUGS (10)
  1. RIFAMPICIN CAPSULES [Suspect]
     Active Substance: RIFAMPIN
     Indication: SPONDYLITIS
  2. NORADRENALINE [Concomitant]
     Active Substance: NOREPINEPHRINE
     Dosage: 0.16 UG/KG, UNK
     Route: 065
  3. VANCOMYCIN HYDROCHLORIDE FOR INTRAVENOUS INFUSION [Suspect]
     Active Substance: VANCOMYCIN HYDROCHLORIDE
     Indication: DEVICE RELATED INFECTION
     Dosage: UNK
     Route: 042
  4. RIFAMPICIN CAPSULES [Suspect]
     Active Substance: RIFAMPIN
     Indication: STAPHYLOCOCCAL INFECTION
     Dosage: 450 MG, UNK
     Route: 048
     Dates: start: 20180104, end: 20180129
  5. CEFAMEZIN [Suspect]
     Active Substance: CEFAZOLIN
     Indication: STAPHYLOCOCCAL INFECTION
     Dosage: UNK
     Route: 042
  6. NORADRENALINE [Concomitant]
     Active Substance: NOREPINEPHRINE
     Indication: BLOOD PRESSURE DECREASED
     Dosage: 0.07 UG/KG/MIN
     Route: 065
  7. MEROPENEM. [Suspect]
     Active Substance: MEROPENEM
     Indication: DEVICE RELATED INFECTION
     Dosage: UNK
     Route: 042
  8. HYDROCORTISONE BUTYRATE. [Concomitant]
     Active Substance: HYDROCORTISONE BUTYRATE
     Indication: ADRENAL INSUFFICIENCY
     Dosage: 100 MG, Q12H
     Route: 065
  9. MICAFUNGIN SODIUM [Concomitant]
     Active Substance: MICAFUNGIN SODIUM
     Indication: DEVICE RELATED INFECTION
     Dosage: UNK
     Route: 065
  10. RIFAMPICIN CAPSULES [Suspect]
     Active Substance: RIFAMPIN
     Indication: PNEUMONIA

REACTIONS (1)
  - Pyrexia [Recovered/Resolved]

NARRATIVE: CASE EVENT DATE: 20180122
